FAERS Safety Report 13252180 (Version 3)
Quarter: 2017Q2

REPORT INFORMATION
  Report Type: Report from Study
  Country: None (occurrence: BE)
  Receive Date: 20170220
  Receipt Date: 20170417
  Transmission Date: 20170830
  Serious: Yes (Hospitalization)
  Sender: FDA-Public Use
  Company Number: BE-ABBVIE-16P-013-1574170-00

PATIENT
  Sex: Female

DRUGS (12)
  1. DUODOPA [Suspect]
     Active Substance: CARBIDOPA\LEVODOPA
     Dosage: AM= 5 ML; CD= 2.5 ML/H DURING 16 HRS; ED= 0.5 ML
     Route: 050
     Dates: start: 20161024, end: 20170203
  2. DUODOPA [Suspect]
     Active Substance: CARBIDOPA\LEVODOPA
     Dosage: AM= 5 ML; CD= 2.7 ML/H DURING 16 HRS; ED= 0.5 ML
     Route: 065
     Dates: start: 20170203, end: 2017
  3. DUODOPA [Suspect]
     Active Substance: CARBIDOPA\LEVODOPA
     Dosage: AM= 5 ML; CD= 2.7 ML/H DURING 16 HRS; ED= 0.5 ML
     Route: 050
     Dates: start: 2017, end: 20170414
  4. DUODOPA [Suspect]
     Active Substance: CARBIDOPA\LEVODOPA
     Dosage: AM=9ML; CD=3.2ML/H FOR 16HRS; ED=2ML
     Route: 050
     Dates: start: 20100221, end: 20100224
  5. LEVODOPA/BENSERAZIDE (PROLOPA HBS) [Concomitant]
     Indication: PARKINSON^S DISEASE
     Dosage: FORM STRENGTH: 100MG/25MG
     Route: 048
  6. DUODOPA [Suspect]
     Active Substance: CARBIDOPA\LEVODOPA
     Dosage: DOSES CONTINUOUSLY MONITORED AND ADAPTED.
     Route: 050
     Dates: start: 20100224, end: 20160226
  7. DUODOPA [Suspect]
     Active Substance: CARBIDOPA\LEVODOPA
     Dosage: AM= 5 ML; CD= 2.5 ML/H DURING 16 HRS; ED= 1 ML
     Route: 050
     Dates: start: 20161019, end: 20161024
  8. DUODOPA [Suspect]
     Active Substance: CARBIDOPA\LEVODOPA
     Indication: PARKINSON^S DISEASE
     Dosage: UNKNOWN
     Route: 050
     Dates: start: 20100215, end: 20100221
  9. TRIHEXYPHENIDYL (ARTANE) [Concomitant]
     Indication: PRODUCT USED FOR UNKNOWN INDICATION
  10. DUODOPA [Suspect]
     Active Substance: CARBIDOPA\LEVODOPA
     Dosage: AM: 5 ML ; CD: 2.5ML/H FOR 16 HRS; ED: 1 ML
     Route: 050
     Dates: start: 20160518, end: 20161019
  11. DUODOPA [Suspect]
     Active Substance: CARBIDOPA\LEVODOPA
     Dosage: AM= 5 ML; CD= 2.5 ML/H DURING 16 HRS; ED= 0.5 ML
     Route: 050
     Dates: start: 20170414
  12. DUODOPA [Suspect]
     Active Substance: CARBIDOPA\LEVODOPA
     Dosage: AM=5ML; CD=2.5ML/H FOR 16HRS; ED=0.5ML
     Route: 050
     Dates: start: 20160226, end: 20160518

REACTIONS (10)
  - Dyskinesia [Not Recovered/Not Resolved]
  - Device issue [Recovered/Resolved]
  - Pyrexia [Unknown]
  - Malaise [Unknown]
  - Drug dose omission [Unknown]
  - Device alarm issue [Unknown]
  - Device occlusion [Recovered/Resolved]
  - Incorrect route of drug administration [Recovered/Resolved]
  - Tremor [Recovering/Resolving]
  - General physical health deterioration [Unknown]
